FAERS Safety Report 18344303 (Version 1)
Quarter: 2020Q4

REPORT INFORMATION
  Report Type: Spontaneous
  Country: US (occurrence: US)
  Receive Date: 20201005
  Receipt Date: 20201005
  Transmission Date: 20210114
  Serious: Yes (Hospitalization, Other)
  Sender: FDA-Public Use
  Company Number: None

PATIENT
  Age: 43 Year
  Sex: Male
  Weight: 56 kg

DRUGS (9)
  1. FERROUS SULFATE. [Concomitant]
     Active Substance: FERROUS SULFATE
  2. NIVOLUMAB [Concomitant]
     Active Substance: NIVOLUMAB
  3. PANTOPRAZOLE [Concomitant]
     Active Substance: PANTOPRAZOLE
  4. APIXABAN [Suspect]
     Active Substance: APIXABAN
     Indication: DEEP VEIN THROMBOSIS
     Dates: start: 20200828, end: 20200915
  5. BENZONATATE. [Concomitant]
     Active Substance: BENZONATATE
  6. SIMVASTATIN. [Concomitant]
     Active Substance: SIMVASTATIN
  7. VALSARTAN. [Concomitant]
     Active Substance: VALSARTAN
  8. CARVEDILOL. [Concomitant]
     Active Substance: CARVEDILOL
  9. VITAMIN D2 [Concomitant]
     Active Substance: ERGOCALCIFEROL

REACTIONS (1)
  - Shock haemorrhagic [None]

NARRATIVE: CASE EVENT DATE: 20200915
